FAERS Safety Report 5261192-8 (Version None)
Quarter: 2007Q1

REPORT INFORMATION
  Report Type: 
  Country: None (occurrence: None)
  Receive Date: 20070309
  Receipt Date: 20070209
  Transmission Date: 20070707
  Serious: Yes (Other)
  Sender: FDA-Public Use
  Company Number: US-PFIZER INC-2007013108

PATIENT
  Sex: Male

DRUGS (2)
  1. BEXTRA [Suspect]
     Indication: MYOSITIS
     Dates: start: 20020501, end: 20041220
  2. BEXTRA [Suspect]
     Indication: SPINAL OSTEOARTHRITIS

REACTIONS (1)
  - STEVENS-JOHNSON SYNDROME [None]
